FAERS Safety Report 9641665 (Version 2)
Quarter: 2013Q4

REPORT INFORMATION
  Report Type: Spontaneous
  Country: US (occurrence: US)
  Receive Date: 20131023
  Receipt Date: 20131127
  Transmission Date: 20140711
  Serious: Yes (Hospitalization, Other)
  Sender: FDA-Public Use
  Company Number: US-ELI_LILLY_AND_COMPANY-US201310004707

PATIENT
  Age: 73 Year
  Sex: Female

DRUGS (2)
  1. GEMZAR [Suspect]
     Indication: LYMPHOMA
     Dosage: 500 MG/M2, WEEKLY (1/W)
     Route: 042
     Dates: start: 20131010
  2. FENTANYL [Suspect]
     Indication: NECK PAIN
     Dosage: UNK, OTHER
     Dates: start: 20131008, end: 20131012

REACTIONS (10)
  - Tachycardia [Recovered/Resolved]
  - Atrial fibrillation [Recovered/Resolved]
  - Blood pressure decreased [Recovered/Resolved]
  - Disorientation [Recovered/Resolved]
  - White blood cell count decreased [Recovered/Resolved]
  - Platelet count decreased [Recovered/Resolved]
  - Asthenia [Recovered/Resolved]
  - Pyrexia [Recovered/Resolved]
  - Hypersomnia [Recovered/Resolved]
  - Hypoaesthesia [Recovered/Resolved]
